FAERS Safety Report 4321225-X (Version None)
Quarter: 2004Q1

REPORT INFORMATION
  Report Type: 
  Country: None (occurrence: None)
  Receive Date: 20040322
  Receipt Date: 20040322
  Transmission Date: 20041129
  Serious: Yes (Hospitalization)
  Sender: FDA-Public Use
  Company Number: None

PATIENT
  Age: 80 Year
  Sex: Female

DRUGS (3)
  1. PRAVASTATIN [Suspect]
     Indication: HYPERLIPIDAEMIA
     Dosage: 20 MG EVERY NIGH ORAL
     Route: 048
     Dates: start: 20030301, end: 20040317
  2. ALLEGRA [Concomitant]
  3. CALTRATE [Concomitant]

REACTIONS (2)
  - ABDOMINAL PAIN [None]
  - VOMITING [None]
